FAERS Safety Report 4971707-2 (Version None)
Quarter: 2006Q2

REPORT INFORMATION
  Report Type: 
  Country: None (occurrence: None)
  Receive Date: 20060413
  Receipt Date: 20060404
  Transmission Date: 20061013
  Serious: Yes (Other)
  Sender: FDA-Public Use
  Company Number: US-AMGEN-STX175081

PATIENT
  Sex: Female

DRUGS (1)
  1. ENBREL [Suspect]
     Indication: ANKYLOSING SPONDYLITIS
     Route: 030
     Dates: start: 20050101, end: 20060401

REACTIONS (2)
  - AORTIC VALVE STENOSIS [None]
  - CONDITION AGGRAVATED [None]
